FAERS Safety Report 14025079 (Version 1)
Quarter: 2017Q3

REPORT INFORMATION
  Report Type: Spontaneous
  Country: UA (occurrence: UA)
  Receive Date: 20170929
  Receipt Date: 20170929
  Transmission Date: 20171128
  Serious: Yes (Other)
  Sender: FDA-Public Use
  Company Number: UA-BAYER-2017-187344

PATIENT
  Age: 50 Year
  Sex: Male

DRUGS (1)
  1. ASPIRIN CARDIO 100 MG [Suspect]
     Active Substance: ASPIRIN
     Dosage: DURING 1-2 MONTHS

REACTIONS (2)
  - Peptic ulcer [None]
  - Gastritis [None]
